FAERS Safety Report 5804218-2 (Version None)
Quarter: 2008Q3

REPORT INFORMATION
  Report Type: 
  Country: None (occurrence: None)
  Receive Date: 20080709
  Receipt Date: 20080704
  Transmission Date: 20090109
  Serious: Yes (Death, Life-Threatening, Hospitalization)
  Sender: FDA-Public Use
  Company Number: HQWYE516103OCT06

PATIENT
  Sex: Male

DRUGS (13)
  1. SIROLIMUS [Suspect]
     Indication: PROPHYLAXIS AGAINST TRANSPLANT REJECTION
     Route: 048
     Dates: start: 20060517, end: 20060531
  2. SIROLIMUS [Suspect]
     Route: 048
     Dates: start: 20060601, end: 20060724
  3. TACROLIMUS [Concomitant]
     Indication: PROPHYLAXIS AGAINST TRANSPLANT REJECTION
     Route: 048
     Dates: start: 20060726
  4. DIFLUCAN [Concomitant]
     Dosage: UNKNOWN
     Route: 065
     Dates: start: 20060313, end: 20060819
  5. METHOCARBAMOL [Concomitant]
     Dosage: UNKNOWN
     Route: 065
     Dates: start: 20060505, end: 20060819
  6. LOPRESSOR [Concomitant]
     Dosage: UNKNOWN
     Route: 065
     Dates: start: 20060331, end: 20060819
  7. AMBIEN [Concomitant]
     Dosage: UNKNOWN
     Route: 065
     Dates: start: 20060610, end: 20060819
  8. PROTONIX [Concomitant]
     Dosage: UNKNOWN
     Route: 065
     Dates: start: 20060331, end: 20060819
  9. ZYVOX [Concomitant]
     Dosage: UNKNOWN
     Route: 065
     Dates: start: 20060509, end: 20060819
  10. PREDNISOLONE [Concomitant]
     Indication: PROPHYLAXIS AGAINST TRANSPLANT REJECTION
     Route: 048
     Dates: start: 20060617, end: 20060819
  11. BETAGAN [Concomitant]
     Dosage: UNKNOWN
     Route: 065
     Dates: start: 20060505, end: 20060819
  12. MYCOPHENOLATE MOFETIL [Concomitant]
     Indication: PROPHYLAXIS AGAINST TRANSPLANT REJECTION
     Route: 048
     Dates: start: 20060323
  13. URSODIOL [Concomitant]
     Dosage: UNKNOWN
     Route: 065
     Dates: start: 20060331, end: 20060819

REACTIONS (6)
  - CARDIAC ARREST [None]
  - HEADACHE [None]
  - HEPATIC ISCHAEMIA [None]
  - LIVER TRANSPLANT REJECTION [None]
  - MULTI-ORGAN FAILURE [None]
  - PYREXIA [None]
